FAERS Safety Report 26167611 (Version 1)
Quarter: 2025Q4

REPORT INFORMATION
  Report Type: Spontaneous
  Country: CN (occurrence: CN)
  Receive Date: 20251217
  Receipt Date: 20251217
  Transmission Date: 20260118
  Serious: Yes (Other)
  Sender: ROCHE
  Company Number: CN-ROCHE-10000458751

PATIENT
  Age: 82 Year
  Sex: Female

DRUGS (11)
  1. POLIVY [Suspect]
     Active Substance: POLATUZUMAB VEDOTIN-PIIQ
     Indication: Diffuse large B-cell lymphoma
     Route: 041
     Dates: start: 20251116, end: 20251116
  2. RITUXIMAB [Suspect]
     Active Substance: RITUXIMAB
     Indication: Diffuse large B-cell lymphoma
     Route: 041
     Dates: start: 20251116, end: 20251116
  3. RITUXIMAB [Suspect]
     Active Substance: RITUXIMAB
     Route: 041
     Dates: start: 20251116, end: 20251116
  4. LENALIDOMIDE [Suspect]
     Active Substance: LENALIDOMIDE
     Indication: Diffuse large B-cell lymphoma
     Route: 048
     Dates: start: 20251116, end: 20251125
  5. LEUCOGEN [Concomitant]
     Active Substance: LEUCOGEN
     Route: 048
     Dates: start: 20251113, end: 20251119
  6. Potassium Chloride Granules [Concomitant]
     Indication: White blood cell count decreased
     Dosage: 1 POUCH
     Route: 048
     Dates: start: 20251113, end: 20251119
  7. BAI TE XI [Concomitant]
     Indication: Prophylaxis
     Route: 058
     Dates: start: 20251113, end: 20251115
  8. PEGylated Recombinant Human Granulocyte Colony-Stimulating Factor Inj [Concomitant]
     Indication: Prophylaxis
     Route: 058
     Dates: start: 20251119, end: 20251119
  9. SODIUM CHLORIDE [Concomitant]
     Active Substance: SODIUM CHLORIDE
     Route: 041
     Dates: start: 20251116, end: 20251116
  10. SODIUM CHLORIDE [Concomitant]
     Active Substance: SODIUM CHLORIDE
     Route: 041
     Dates: start: 20251116, end: 20251116
  11. SODIUM CHLORIDE [Concomitant]
     Active Substance: SODIUM CHLORIDE
     Route: 041
     Dates: start: 20251116, end: 20251116

REACTIONS (5)
  - White blood cell count decreased [Recovering/Resolving]
  - Neutrophil count decreased [Recovering/Resolving]
  - Hypokalaemia [Recovering/Resolving]
  - Cough [Unknown]
  - Sputum discoloured [Unknown]

NARRATIVE: CASE EVENT DATE: 20251208
